FAERS Safety Report 5422566-5 (Version None)
Quarter: 2007Q3

REPORT INFORMATION
  Report Type: 
  Country: None (occurrence: None)
  Receive Date: 20070822
  Receipt Date: 20070621
  Transmission Date: 20080115
  Serious: Yes (Death)
  Sender: FDA-Public Use
  Company Number: GB-BRISTOL-MYERS SQUIBB COMPANY-13882386

PATIENT
  Sex: Female

DRUGS (2)
  1. SUSTIVA [Suspect]
  2. COMBIVIR [Suspect]

REACTIONS (1)
  - DEATH [None]
